FAERS Safety Report 7313443-3 (Version None)
Quarter: 2011Q1

REPORT INFORMATION
  Report Type: 
  Country: None (occurrence: None)
  Receive Date: 20110225
  Receipt Date: 20110221
  Transmission Date: 20110831
  Serious: Yes (Other)
  Sender: FDA-Public Use
  Company Number: US-PFIZER INC-2011037182

PATIENT
  Sex: Female
  Weight: 56.689 kg

DRUGS (4)
  1. PRISTIQ [Suspect]
     Indication: BIPOLAR DISORDER
     Dosage: 15 MG, 1X/DAY
     Route: 048
     Dates: start: 20110216, end: 20110217
  2. KLONOPIN [Suspect]
     Indication: ANXIETY
  3. KLONOPIN [Suspect]
     Indication: BIPOLAR DISORDER
     Dosage: 1 MG HALF A TABLET AT BEDTIME
     Route: 048
     Dates: start: 20110218
  4. PRISTIQ [Suspect]
     Indication: ANXIETY

REACTIONS (11)
  - DIZZINESS [None]
  - WEIGHT DECREASED [None]
  - HEART RATE INCREASED [None]
  - HYPOAESTHESIA [None]
  - BALANCE DISORDER [None]
  - SOMNOLENCE [None]
  - NAUSEA [None]
  - CONVULSION [None]
  - RESPIRATORY RATE INCREASED [None]
  - BLOOD PRESSURE DECREASED [None]
  - VOMITING [None]
